FAERS Safety Report 5405998-0 (Version None)
Quarter: 2007Q3

REPORT INFORMATION
  Report Type: 
  Country: None (occurrence: None)
  Receive Date: 20070802
  Receipt Date: 20070718
  Transmission Date: 20080115
  Serious: Yes (Other)
  Sender: FDA-Public Use
  Company Number: ENT 2007-0112

PATIENT
  Age: 71 Year
  Sex: Male

DRUGS (6)
  1. COMTAN [Suspect]
     Indication: PARKINSON'S DISEASE
     Dosage: 200 MG ORAL
     Route: 048
     Dates: end: 20070705
  2. LEVODOPA [Concomitant]
  3. CARBIDOPA [Concomitant]
  4. SELEGILINE HCL [Concomitant]
  5. ENALAPRIL MALEATE [Concomitant]
  6. VITAMIN B-12 [Concomitant]

REACTIONS (3)
  - BLOOD PRESSURE FLUCTUATION [None]
  - BLOOD PRESSURE INCREASED [None]
  - FEELING HOT [None]
